FAERS Safety Report 7069744-X (Version None)
Quarter: 2010Q4

REPORT INFORMATION
  Report Type: 
  Country: None (occurrence: None)
  Receive Date: 20101028
  Receipt Date: 20100519
  Transmission Date: 20110411
  Serious: No
  Sender: FDA-Public Use
  Company Number: US-WYE-H15221210

PATIENT
  Sex: Male

DRUGS (2)
  1. PROTONIX [Suspect]
     Dosage: UNKNOWN
     Route: 042
  2. PANTOPRAZOLE [Suspect]
     Dosage: UNKNOWN
     Route: 065

REACTIONS (1)
  - DRUG SCREEN POSITIVE [None]
